FAERS Safety Report 21487848 (Version 1)
Quarter: 2022Q4

REPORT INFORMATION
  Report Type: Spontaneous
  Country: US (occurrence: US)
  Receive Date: 20221020
  Receipt Date: 20221020
  Transmission Date: 20230112
  Serious: No
  Sender: FDA-Public Use
  Company Number: US-ALLERGAN-2215755US

PATIENT
  Sex: Female

DRUGS (1)
  1. LINZESS [Suspect]
     Active Substance: LINACLOTIDE
     Indication: Irritable bowel syndrome
     Dosage: 290 ?G
     Dates: end: 20220501

REACTIONS (4)
  - Intercepted product prescribing error [Unknown]
  - Product dose omission issue [Unknown]
  - Otitis media [Not Recovered/Not Resolved]
  - Constipation [Unknown]
